FAERS Safety Report 5701701-5 (Version None)
Quarter: 2008Q2

REPORT INFORMATION
  Report Type: 
  Country: None (occurrence: None)
  Receive Date: 20080409
  Receipt Date: 20080409
  Transmission Date: 20081010
  Serious: No
  Sender: FDA-Public Use
  Company Number: None

PATIENT
  Age: 54 Year
  Sex: Female
  Weight: 83.9154 kg

DRUGS (1)
  1. PROMETRIUM [Suspect]
     Indication: BLOOD OESTROGEN ABNORMAL
     Dosage: 100MG  1 BEDTIME  PO
     Route: 048
     Dates: start: 20070908, end: 20080408

REACTIONS (9)
  - ARTHRALGIA [None]
  - ARTHROPATHY [None]
  - BREAST TENDERNESS [None]
  - CRYING [None]
  - DEPRESSION [None]
  - FATIGUE [None]
  - GAIT DISTURBANCE [None]
  - MYALGIA [None]
  - PHARMACEUTICAL PRODUCT COMPLAINT [None]
